FAERS Safety Report 16171156 (Version 2)
Quarter: 2019Q2

REPORT INFORMATION
  Report Type: Spontaneous
  Country: ES (occurrence: ES)
  Receive Date: 20190408
  Receipt Date: 20190416
  Transmission Date: 20190711
  Serious: Yes (Other)
  Sender: FDA-Public Use
  Company Number: ES-PFIZER INC-2019139657

PATIENT
  Age: 19 Month
  Sex: Male

DRUGS (4)
  1. CLOBAZAM. [Concomitant]
     Active Substance: CLOBAZAM
     Indication: EPILEPSY
     Dosage: UNK
  2. PERAMPANEL [Suspect]
     Active Substance: PERAMPANEL
     Indication: EPILEPSY
     Dosage: 2 MG, DAILY
  3. LEVETIRACETAM. [Concomitant]
     Active Substance: LEVETIRACETAM
     Indication: EPILEPSY
     Dosage: UNK
  4. VALPROIC ACID. [Concomitant]
     Active Substance: VALPROIC ACID
     Indication: EPILEPSY
     Dosage: UNK

REACTIONS (2)
  - Status epilepticus [Recovered/Resolved]
  - Petit mal epilepsy [Recovered/Resolved]
